FAERS Safety Report 13704398 (Version 1)
Quarter: 2017Q2

REPORT INFORMATION
  Report Type: Spontaneous
  Country: US (occurrence: US)
  Receive Date: 20170629
  Receipt Date: 20170629
  Transmission Date: 20170830
  Serious: Yes (Other)
  Sender: FDA-Public Use
  Company Number: None

PATIENT
  Age: 5 Month
  Sex: Female
  Weight: 66.4 kg

DRUGS (19)
  1. NAXONEX [Concomitant]
  2. CRANBERRY+VITAMIN C [Concomitant]
  3. APAP [Concomitant]
     Active Substance: ACETAMINOPHEN
  4. METALAXONE [Concomitant]
  5. PREGABALIN. [Concomitant]
     Active Substance: PREGABALIN
  6. CENTRUM SILVER [Concomitant]
     Active Substance: MINERALS\VITAMINS
  7. PREMARIN [Concomitant]
     Active Substance: ESTROGENS, CONJUGATED
  8. VITAMIN D3 [Concomitant]
     Active Substance: CHOLECALCIFEROL
  9. LOSARTAN-HCTZ [Concomitant]
     Active Substance: HYDROCHLOROTHIAZIDE\LOSARTAN
  10. SOLIFENACIN [Concomitant]
     Active Substance: SOLIFENACIN
  11. BIOTIN [Concomitant]
     Active Substance: BIOTIN
  12. AUBAGIO [Suspect]
     Active Substance: TERIFLUNOMIDE
     Indication: MULTIPLE SCLEROSIS
     Dosage: ?          OTHER DOSE:MG;?
     Route: 048
     Dates: start: 20150903, end: 20170626
  13. METHENAMINE HIPPURATE. [Concomitant]
     Active Substance: METHENAMINE HIPPURATE
  14. TRAMADOL. [Concomitant]
     Active Substance: TRAMADOL
  15. ZOLPIDEM [Concomitant]
     Active Substance: ZOLPIDEM\ZOLPIDEM TARTRATE
  16. B COMPLEX WITH VITAMIN C [Concomitant]
  17. MELATONIN [Concomitant]
     Active Substance: MELATONIN
  18. AMANTADINE. [Concomitant]
     Active Substance: AMANTADINE HYDROCHLORIDE
  19. LOPRESSOR [Concomitant]
     Active Substance: METOPROLOL TARTRATE

REACTIONS (3)
  - Hepatic enzyme increased [None]
  - Multiple sclerosis relapse [None]
  - Hyponatraemia [None]

NARRATIVE: CASE EVENT DATE: 20170626
